FAERS Safety Report 9501908 (Version 2)
Quarter: 2013Q3

REPORT INFORMATION
  Report Type: Spontaneous
  Country: IT (occurrence: IT)
  Receive Date: 20130905
  Receipt Date: 20130912
  Transmission Date: 20140515
  Serious: Yes (Hospitalization)
  Sender: FDA-Public Use
  Company Number: IT-ASTRAZENECA-2013SE67050

PATIENT
  Age: 27556 Day
  Sex: Female

DRUGS (8)
  1. ZESTORETIC [Suspect]
     Dosage: 20 MG +12.5 MG, 1 TABLET DAILY
     Route: 048
     Dates: start: 20120101, end: 20130312
  2. MODURETIC [Suspect]
     Indication: HYPERTENSION
     Dosage: 5 MG+50 MG, 1 TABLET AS REQUIRED
     Route: 048
  3. LANSOPRAZOLE [Concomitant]
     Route: 048
     Dates: start: 20120101, end: 20130312
  4. PROPAFENONE [Concomitant]
     Route: 048
     Dates: start: 20120101, end: 20130312
  5. CELEBREX [Concomitant]
     Route: 048
     Dates: start: 20120101, end: 20130312
  6. MEDROL [Concomitant]
     Route: 048
     Dates: start: 20130301, end: 20130312
  7. BIDIABE [Concomitant]
     Route: 048
     Dates: start: 20120101, end: 20130312
  8. LEXOTAN [Concomitant]

REACTIONS (2)
  - Drug abuse [Unknown]
  - Hyponatraemia [Unknown]
